FAERS Safety Report 26118984 (Version 2)
Quarter: 2025Q4

REPORT INFORMATION
  Report Type: Spontaneous
  Country: US (occurrence: None)
  Receive Date: 20251204
  Receipt Date: 20251224
  Transmission Date: 20260117
  Serious: Yes (Hospitalization)
  Sender: UCB
  Company Number: US-UCBSA-2025075137

PATIENT
  Age: 43 Year
  Weight: 190.47 kg

DRUGS (1)
  1. BIMZELX [Suspect]
     Active Substance: BIMEKIZUMAB-BKZX
     Indication: Psoriasis
     Dosage: 320 MILLIGRAM, EV 4 WEEKS

REACTIONS (2)
  - Gastric bypass [Unknown]
  - Intentional dose omission [Unknown]
